FAERS Safety Report 25291885 (Version 1)
Quarter: 2025Q2

REPORT INFORMATION
  Report Type: Spontaneous
  Country: US (occurrence: US)
  Receive Date: 20250510
  Receipt Date: 20250510
  Transmission Date: 20250716
  Serious: No
  Sender: SANOFI AVENTIS
  Company Number: US-SA-2025SA119363

PATIENT
  Sex: Female
  Weight: 62.73 kg

DRUGS (25)
  1. DUPIXENT [Suspect]
     Active Substance: DUPILUMAB
     Indication: Asthma
     Dosage: 300 MG, QOW
     Route: 058
  2. ROCKLATAN [Suspect]
     Active Substance: LATANOPROST\NETARSUDIL MESYLATE
  3. ACTEMRA [Concomitant]
     Active Substance: TOCILIZUMAB
  4. MONTELUKAST SODIUM [Concomitant]
     Active Substance: MONTELUKAST SODIUM
  5. ROPINIROLE HYDROCHLORIDE [Concomitant]
     Active Substance: ROPINIROLE HYDROCHLORIDE
  6. FLUTICASONE PROPIONATE [Concomitant]
     Active Substance: FLUTICASONE PROPIONATE
  7. VOLTAREN [Concomitant]
     Active Substance: DICLOFENAC SODIUM
  8. ZYRTEC [Concomitant]
     Active Substance: CETIRIZINE HYDROCHLORIDE
  9. ZADITOR [Concomitant]
     Active Substance: KETOTIFEN FUMARATE
  10. VITAMIN C [Concomitant]
     Active Substance: ASCORBIC ACID
  11. MAGNESIUM [Concomitant]
     Active Substance: MAGNESIUM
  12. PROBIOTICS NOS [Concomitant]
     Active Substance: PROBIOTICS NOS
  13. TYLENOL [Concomitant]
     Active Substance: ACETAMINOPHEN
  14. VITAMINS [Concomitant]
     Active Substance: VITAMINS
  15. EPINEPHRINE [Concomitant]
     Active Substance: EPINEPHRINE
  16. SUMATRIPTAN SUCCINATE [Concomitant]
     Active Substance: SUMATRIPTAN SUCCINATE
  17. BRIMONIDINE TARTRATE [Concomitant]
     Active Substance: BRIMONIDINE TARTRATE
  18. BREZTRI [Concomitant]
     Active Substance: BUDESONIDE\FORMOTEROL\GLYCOPYRROLATE
  19. GABAPENTIN [Concomitant]
     Active Substance: GABAPENTIN
  20. PILOCARPINE HYDROCHLORIDE [Concomitant]
     Active Substance: PILOCARPINE HYDROCHLORIDE
  21. ARAVA [Concomitant]
     Active Substance: LEFLUNOMIDE
  22. TIZANIDINE HYDROCHLORIDE [Concomitant]
     Active Substance: TIZANIDINE HYDROCHLORIDE
  23. TESTOSTERONE [Concomitant]
     Active Substance: TESTOSTERONE
  24. ESTRADIOL [Concomitant]
     Active Substance: ESTRADIOL
  25. SIMPONI ARIA [Concomitant]
     Active Substance: GOLIMUMAB

REACTIONS (1)
  - Dry eye [Unknown]
